FAERS Safety Report 19068949 (Version 1)
Quarter: 2021Q1

REPORT INFORMATION
  Report Type: Spontaneous
  Country: US (occurrence: US)
  Receive Date: 20210329
  Receipt Date: 20210329
  Transmission Date: 20210420
  Serious: Yes (Other)
  Sender: FDA-Public Use
  Company Number: US-SA-2021SA104686

PATIENT
  Age: 60 Year
  Sex: Male

DRUGS (1)
  1. DUPIXENT [Suspect]
     Active Substance: DUPILUMAB
     Indication: DERMATITIS ATOPIC
     Route: 058
     Dates: start: 20200306

REACTIONS (7)
  - Ocular discomfort [Not Recovered/Not Resolved]
  - Emotional disorder [Unknown]
  - Pruritus [Recovered/Resolved]
  - Dermatitis atopic [Unknown]
  - Ocular hyperaemia [Not Recovered/Not Resolved]
  - Eye pruritus [Recovered/Resolved]
  - Depressed mood [Unknown]

NARRATIVE: CASE EVENT DATE: 202102
